FAERS Safety Report 22397427 (Version 9)
Quarter: 2024Q2

REPORT INFORMATION
  Report Type: Report from Study
  Country: US (occurrence: US)
  Receive Date: 20230602
  Receipt Date: 20240614
  Transmission Date: 20240715
  Serious: Yes (Hospitalization, Other)
  Sender: FDA-Public Use
  Company Number: US-ACADIA PHARMACEUTICALS INC.-ACA-2023-TRF-001809

PATIENT
  Age: 13 Year
  Sex: Female

DRUGS (3)
  1. DAYBUE [Suspect]
     Active Substance: TROFINETIDE
     Indication: Rett syndrome
     Dosage: 15 MILLILITER, VIA G TUBE
     Dates: start: 20230505
  2. DAYBUE [Suspect]
     Active Substance: TROFINETIDE
     Dosage: 50 MILLILITER, BID
     Dates: end: 20240513
  3. DAYBUE [Suspect]
     Active Substance: TROFINETIDE
     Dosage: 50 MILLILITER, BID
     Dates: start: 20240515

REACTIONS (26)
  - Pneumonia bacterial [Recovered/Resolved]
  - Secretion discharge [Recovered/Resolved]
  - Pneumonia viral [Recovered/Resolved]
  - Pneumonia [Unknown]
  - Pneumonia [Not Recovered/Not Resolved]
  - Pulmonary congestion [Unknown]
  - Pneumonia aspiration [Unknown]
  - Retching [Unknown]
  - Lower respiratory tract congestion [Unknown]
  - Cough [Unknown]
  - Dermatitis diaper [Not Recovered/Not Resolved]
  - Frequent bowel movements [Not Recovered/Not Resolved]
  - Pruritus [Recovered/Resolved]
  - Frequent bowel movements [Not Recovered/Not Resolved]
  - Frequent bowel movements [Not Recovered/Not Resolved]
  - Secretion discharge [Not Recovered/Not Resolved]
  - Muscle rigidity [Not Recovered/Not Resolved]
  - Tibia fracture [Not Recovered/Not Resolved]
  - Sinusitis [Unknown]
  - Underdose [Unknown]
  - Dermatitis diaper [Recovered/Resolved]
  - Faeces soft [Not Recovered/Not Resolved]
  - Hypersensitivity [Unknown]
  - Product dose omission issue [Recovered/Resolved]
  - Diarrhoea [Not Recovered/Not Resolved]
  - Vomiting [Unknown]

NARRATIVE: CASE EVENT DATE: 20230505
